FAERS Safety Report 14442213 (Version 1)
Quarter: 2018Q1

REPORT INFORMATION
  Report Type: Report from Study
  Country: US (occurrence: US)
  Receive Date: 20180125
  Receipt Date: 20180125
  Transmission Date: 20180509
  Serious: Yes (Hospitalization)
  Sender: FDA-Public Use
  Company Number: US-TAKEDA-2018TUS001595

PATIENT
  Age: 23 Year
  Sex: Male

DRUGS (1)
  1. PONATINIB [Suspect]
     Active Substance: PONATINIB
     Indication: ACUTE LEUKAEMIA
     Dosage: 45 MG, QD
     Route: 048
     Dates: start: 201712

REACTIONS (3)
  - Chest pain [Unknown]
  - Bacteraemia [Unknown]
  - Malaise [Unknown]

NARRATIVE: CASE EVENT DATE: 20180115
